FAERS Safety Report 12610008 (Version 1)
Quarter: 2016Q3

REPORT INFORMATION
  Report Type: Spontaneous
  Country: US (occurrence: None)
  Receive Date: 20160729
  Receipt Date: 20160729
  Transmission Date: 20161109
  Serious: Yes (Hospitalization, Other)
  Sender: FDA-Public Use
  Company Number: None

PATIENT
  Age: 41 Year
  Sex: Male
  Weight: 75.4 kg

DRUGS (12)
  1. THIAMINE. [Concomitant]
     Active Substance: THIAMINE
  2. VITAMIN A [Concomitant]
     Active Substance: VITAMIN A
  3. LACTOBACILLUS RHAMNOSUS GG (PROBIOTIC) [Concomitant]
     Active Substance: PROBIOTICS NOS
  4. HUMIRA [Suspect]
     Active Substance: ADALIMUMAB
     Indication: COLITIS ULCERATIVE
     Route: 058
     Dates: start: 20160715, end: 20160715
  5. MESALAMINE. [Concomitant]
     Active Substance: MESALAMINE
  6. OMEPRAZOLE. [Concomitant]
     Active Substance: OMEPRAZOLE
  7. ERGOCALCIFEROL. [Concomitant]
     Active Substance: ERGOCALCIFEROL
  8. FERROUS SULFATE. [Concomitant]
     Active Substance: FERROUS SULFATE
  9. ASCORBIC ACID. [Concomitant]
     Active Substance: ASCORBIC ACID
  10. HYDROCORTISONE. [Concomitant]
     Active Substance: HYDROCORTISONE
  11. BUDESONIDE. [Concomitant]
     Active Substance: BUDESONIDE
  12. CALCIUM CARBONATE. [Concomitant]
     Active Substance: CALCIUM CARBONATE

REACTIONS (2)
  - Blood culture positive [None]
  - Toxic epidermal necrolysis [None]

NARRATIVE: CASE EVENT DATE: 20160726
